FAERS Safety Report 17650257 (Version 1)
Quarter: 2020Q2

REPORT INFORMATION
  Report Type: Spontaneous
  Country: FR (occurrence: FR)
  Receive Date: 20200409
  Receipt Date: 20200409
  Transmission Date: 20200713
  Serious: Yes (Hospitalization)
  Sender: FDA-Public Use
  Company Number: FR-PFIZER INC-2020142731

PATIENT
  Age: 9 Year
  Sex: Male
  Weight: 35 kg

DRUGS (2)
  1. ADVILMED [Suspect]
     Active Substance: IBUPROFEN
     Indication: PYREXIA
     Dosage: UNK (SUITABLE FOR WEIGHT)
     Route: 048
     Dates: start: 20200123, end: 20200123
  2. ADVILMED [Suspect]
     Active Substance: IBUPROFEN
     Dosage: UNK (SUITABLE FOR WEIGHT)
     Route: 048
     Dates: start: 20200128, end: 20200128

REACTIONS (1)
  - Stevens-Johnson syndrome [Recovering/Resolving]

NARRATIVE: CASE EVENT DATE: 20200129
